FAERS Safety Report 5151983-6 (Version None)
Quarter: 2006Q4

REPORT INFORMATION
  Report Type: 
  Country: None (occurrence: None)
  Receive Date: 20061109
  Receipt Date: 20061025
  Transmission Date: 20070319
  Serious: Yes (Life-Threatening, Hospitalization, Disabling, Other)
  Sender: FDA-Public Use
  Company Number: 111949ISR

PATIENT
  Age: 42 Year
  Sex: Female

DRUGS (2)
  1. TRIMETHOPRIM             T [Suspect]
     Dosage: (200 MG) ORAL
     Route: 048
     Dates: start: 20060807
  2. OXCARBAZEPINE [Concomitant]

REACTIONS (5)
  - ANAPHYLACTIC SHOCK [None]
  - BRAIN DAMAGE [None]
  - CARDIAC ARREST [None]
  - CONVULSION [None]
  - HYPOXIC ENCEPHALOPATHY [None]
